FAERS Safety Report 13366611 (Version 1)
Quarter: 2017Q1

REPORT INFORMATION
  Report Type: Spontaneous
  Country: DE (occurrence: DE)
  Receive Date: 20170323
  Receipt Date: 20170323
  Transmission Date: 20170429
  Serious: Yes (Hospitalization, Other)
  Sender: FDA-Public Use
  Company Number: DE-009507513-1612DEU008420

PATIENT
  Age: 26 Year
  Sex: Female
  Weight: 95 kg

DRUGS (2)
  1. NUVARING [Suspect]
     Active Substance: ETHINYL ESTRADIOL\ETONOGESTREL
     Indication: CONTRACEPTION
     Dosage: 1 DF, UNK
     Route: 067
     Dates: start: 20161103, end: 20161210
  2. SALOFALK [Concomitant]
     Active Substance: MESALAMINE
     Indication: COLITIS ULCERATIVE
     Dosage: 3 G, QD
     Dates: start: 2015

REACTIONS (9)
  - Ureteric stenosis [Unknown]
  - Fibrin D dimer increased [Recovered/Resolved]
  - Chest pain [Unknown]
  - Dizziness [Recovered/Resolved]
  - Pain in extremity [Unknown]
  - Malaise [Unknown]
  - Anxiety [Recovered/Resolved]
  - White blood cell count increased [Unknown]
  - Acne [Recovering/Resolving]

NARRATIVE: CASE EVENT DATE: 2016
